FAERS Safety Report 19204716 (Version 4)
Quarter: 2024Q2

REPORT INFORMATION
  Report Type: Report from Study
  Country: CA (occurrence: None)
  Receive Date: 20210503
  Receipt Date: 20240524
  Transmission Date: 20240716
  Serious: Yes (Other)
  Sender: FDA-Public Use
  Company Number: CA-PFIZER INC-2021448838

PATIENT
  Age: 48 Year
  Sex: Female

DRUGS (28)
  1. METHOTREXATE [Suspect]
     Active Substance: METHOTREXATE
     Indication: Product used for unknown indication
  2. COSENTYX [Suspect]
     Active Substance: SECUKINUMAB
     Indication: Psoriatic arthropathy
  3. COSENTYX [Suspect]
     Active Substance: SECUKINUMAB
     Indication: Psoriasis
  4. COSENTYX [Suspect]
     Active Substance: SECUKINUMAB
  5. COSENTYX [Suspect]
     Active Substance: SECUKINUMAB
  6. COSENTYX [Suspect]
     Active Substance: SECUKINUMAB
  7. COSENTYX [Suspect]
     Active Substance: SECUKINUMAB
  8. CLARITHROMYCIN [Concomitant]
     Active Substance: CLARITHROMYCIN
  9. CLARITHROMYCIN [Concomitant]
     Active Substance: CLARITHROMYCIN
  10. AMOXICILLIN [Concomitant]
     Active Substance: AMOXICILLIN
  11. AMOXICILLIN [Concomitant]
     Active Substance: AMOXICILLIN
  12. CEFUROXIME AXETIL [Concomitant]
     Active Substance: CEFUROXIME AXETIL
  13. CEFUROXIME AXETIL [Concomitant]
     Active Substance: CEFUROXIME AXETIL
  14. CEPHALEXIN [Concomitant]
     Active Substance: CEPHALEXIN
  15. CEPHALEXIN [Concomitant]
     Active Substance: CEPHALEXIN
  16. CLARITHROMYCIN;RIFABUTIN [Concomitant]
  17. CLONAZEPAM [Concomitant]
     Active Substance: CLONAZEPAM
  18. CLONAZEPAM [Concomitant]
     Active Substance: CLONAZEPAM
  19. FLUTICASONE\FORMOTEROL [Concomitant]
     Active Substance: FLUTICASONE\FORMOTEROL
  20. FLUTICASONE\FORMOTEROL [Concomitant]
     Active Substance: FLUTICASONE\FORMOTEROL
  21. NAPROXEN [Concomitant]
     Active Substance: NAPROXEN
  22. NAPROXEN [Concomitant]
     Active Substance: NAPROXEN
  23. PLAQUENIL [Concomitant]
     Active Substance: HYDROXYCHLOROQUINE SULFATE
  24. PLAQUENIL [Concomitant]
     Active Substance: HYDROXYCHLOROQUINE SULFATE
  25. ALBUTEROL [Concomitant]
     Active Substance: ALBUTEROL
  26. ALBUTEROL [Concomitant]
     Active Substance: ALBUTEROL
  27. SULFAMETHOXAZOLE\TRIMETHOPRIM [Concomitant]
     Active Substance: SULFAMETHOXAZOLE\TRIMETHOPRIM
  28. CELEBREX [Concomitant]
     Active Substance: CELECOXIB

REACTIONS (8)
  - Treatment failure [Unknown]
  - Off label use [Unknown]
  - Therapeutic response decreased [Unknown]
  - Fatigue [Unknown]
  - Gastrointestinal disorder [Unknown]
  - Photosensitivity reaction [Unknown]
  - Psoriatic arthropathy [Unknown]
  - Lower respiratory tract infection [Unknown]
